FAERS Safety Report 5938445-0 (Version None)
Quarter: 2008Q4

REPORT INFORMATION
  Report Type: 
  Country: None (occurrence: None)
  Receive Date: 20081103
  Receipt Date: 20081023
  Transmission Date: 20090506
  Serious: Yes (Hospitalization, Other)
  Sender: FDA-Public Use
  Company Number: BR-ROCHE-593298

PATIENT
  Sex: Female
  Weight: 70 kg

DRUGS (7)
  1. RIVOTRIL [Suspect]
     Indication: DEPRESSION
     Dosage: STRENGTH: 2 MG/TABLET
     Route: 048
     Dates: start: 20040101, end: 20081001
  2. RIVOTRIL [Suspect]
     Dosage: STRENGTH: .5 MG/TABLET
     Route: 048
     Dates: start: 20081001, end: 20081021
  3. RIVOTRIL [Suspect]
     Dosage: STRENGTH: .5 MG/TABLET
     Route: 048
     Dates: start: 20081022
  4. LOSARTAN POTASSIUM [Concomitant]
     Route: 048
  5. ATENOLOL [Concomitant]
     Route: 048
  6. HYDROCHLOROTHIAZIDE [Concomitant]
     Indication: HYPERTENSION
     Route: 048
     Dates: start: 20020101
  7. AMLODIPINE [Concomitant]
     Indication: HYPERTENSION
     Route: 048

REACTIONS (6)
  - DIZZINESS [None]
  - INFECTION [None]
  - INSOMNIA [None]
  - NERVOUSNESS [None]
  - OOPHORECTOMY BILATERAL [None]
  - VERTIGO [None]
